FAERS Safety Report 5054565-X (Version None)
Quarter: 2006Q3

REPORT INFORMATION
  Report Type: 
  Country: None (occurrence: None)
  Receive Date: 20060714
  Receipt Date: 20060704
  Transmission Date: 20061208
  Serious: Yes (Life-Threatening, Hospitalization)
  Sender: FDA-Public Use
  Company Number: B0430470A

PATIENT
  Age: 72 Year
  Sex: Male

DRUGS (2)
  1. TRANYLCYPROMINE SULFATE [Suspect]
  2. VENLAFAXINE HCL [Suspect]

REACTIONS (13)
  - AKATHISIA [None]
  - DEPRESSED LEVEL OF CONSCIOUSNESS [None]
  - HYPERKALAEMIA [None]
  - HYPERREFLEXIA [None]
  - HYPERTENSION [None]
  - HYPERTONIA [None]
  - METABOLIC ACIDOSIS [None]
  - MYOCLONIC EPILEPSY [None]
  - PYREXIA [None]
  - RESPIRATORY FAILURE [None]
  - SEROTONIN SYNDROME [None]
  - TACHYCARDIA [None]
  - WRONG DRUG ADMINISTERED [None]
